FAERS Safety Report 7467294-X (Version None)
Quarter: 2011Q2

REPORT INFORMATION
  Report Type: 
  Country: None (occurrence: None)
  Receive Date: 20110509
  Receipt Date: 20110323
  Transmission Date: 20111010
  Serious: No
  Sender: FDA-Public Use
  Company Number: US-SANOFI-AVENTIS-2011SA018294

PATIENT
  Sex: Male

DRUGS (4)
  1. APIDRA [Suspect]
     Dosage: SLIDING SCALE
     Route: 058
     Dates: start: 20100701
  2. APIDRA [Suspect]
     Dosage: SLIDING SCALE
     Route: 058
     Dates: start: 20110315
  3. LANTUS [Suspect]
     Dates: start: 20110315
  4. LANTUS [Suspect]
     Dates: start: 20100701

REACTIONS (7)
  - PRODUCT QUALITY ISSUE [None]
  - BLOOD GLUCOSE INCREASED [None]
  - DRUG DOSE OMISSION [None]
  - DIARRHOEA [None]
  - MALAISE [None]
  - VOMITING [None]
  - NAUSEA [None]
